FAERS Safety Report 14026590 (Version 1)
Quarter: 2017Q3

REPORT INFORMATION
  Report Type: Spontaneous
  Country: BR (occurrence: BR)
  Receive Date: 20170929
  Receipt Date: 20170929
  Transmission Date: 20171128
  Serious: Yes (Other)
  Sender: FDA-Public Use
  Company Number: BR-AMGEN-BRASP2017147367

PATIENT
  Age: 61 Year
  Sex: Female

DRUGS (1)
  1. ENBREL [Suspect]
     Active Substance: ETANERCEPT
     Indication: PRODUCT USED FOR UNKNOWN INDICATION
     Dosage: UNK
     Route: 065
     Dates: start: 20170914

REACTIONS (4)
  - Sleep disorder due to general medical condition, insomnia type [Unknown]
  - Condition aggravated [Unknown]
  - Pain in extremity [Unknown]
  - Lymphadenitis bacterial [Unknown]

NARRATIVE: CASE EVENT DATE: 201709
